FAERS Safety Report 6582331-2 (Version None)
Quarter: 2010Q1

REPORT INFORMATION
  Report Type: 
  Country: None (occurrence: None)
  Receive Date: 20100212
  Receipt Date: 20100212
  Transmission Date: 20100710
  Serious: No
  Sender: FDA-Public Use
  Company Number: None

PATIENT
  Age: 61 Year
  Sex: Male

DRUGS (1)
  1. WARFARIN SODIUM [Suspect]
     Indication: ATRIAL FIBRILLATION
     Dosage: 1 MG EVERY DAY PO
     Route: 048
     Dates: start: 20090903, end: 20091211

REACTIONS (3)
  - INTERNATIONAL NORMALISED RATIO ABNORMAL [None]
  - MENTAL STATUS CHANGES [None]
  - SEPSIS [None]
